FAERS Safety Report 4931174-1 (Version None)
Quarter: 2006Q1

REPORT INFORMATION
  Report Type: 
  Country: None (occurrence: None)
  Receive Date: 20060302
  Receipt Date: 20051114
  Transmission Date: 20060701
  Serious: Yes (Death, Hospitalization)
  Sender: FDA-Public Use
  Company Number: US-MERCK-0511USA02228

PATIENT
  Age: 52 Year
  Sex: Female
  Weight: 71 kg

DRUGS (8)
  1. VIOXX [Suspect]
     Indication: ARTHRITIS
     Route: 048
     Dates: start: 20001129, end: 20040508
  2. BEROCCA PLUS TABLETS [Concomitant]
     Indication: HYPOVITAMINOSIS
     Route: 065
  3. ALPRAZOLAM [Concomitant]
     Indication: ANXIETY
     Route: 065
  4. LIPITOR [Concomitant]
     Indication: BLOOD CHOLESTEROL INCREASED
     Route: 065
  5. LANOXIN [Concomitant]
     Indication: CARDIAC DISORDER
     Route: 065
  6. PREVACID [Concomitant]
     Indication: DYSPEPSIA
     Route: 065
  7. ALTACE [Concomitant]
     Indication: HYPERTENSION
     Route: 065
  8. COREG [Concomitant]
     Indication: HYPERTENSION
     Route: 065

REACTIONS (7)
  - CORONARY ARTERY DISEASE [None]
  - CORONARY ARTERY OCCLUSION [None]
  - INJURY [None]
  - PULMONARY EMBOLISM [None]
  - RESPIRATORY ARREST [None]
  - SINUSITIS [None]
  - THYROID DISORDER [None]
